FAERS Safety Report 4420455-6 (Version None)
Quarter: 2004Q3

REPORT INFORMATION
  Report Type: 
  Country: None (occurrence: None)
  Receive Date: 20040809
  Receipt Date: 20040227
  Transmission Date: 20050211
  Serious: Yes (Hospitalization)
  Sender: FDA-Public Use
  Company Number: US-GLAXOSMITHKLINE-A0501187A

PATIENT
  Age: 23 Year
  Sex: Male
  Weight: 88.2 kg

DRUGS (2)
  1. PAXIL CR [Suspect]
     Indication: ILL-DEFINED DISORDER
     Route: 048
  2. STRATTERA [Suspect]

REACTIONS (3)
  - DRUG INTERACTION [None]
  - LOSS OF CONSCIOUSNESS [None]
  - ORTHOSTATIC HYPOTENSION [None]
